FAERS Safety Report 6274162-8 (Version None)
Quarter: 2009Q3

REPORT INFORMATION
  Report Type: 
  Country: None (occurrence: None)
  Receive Date: 20090720
  Receipt Date: 20090708
  Transmission Date: 20100115
  Serious: Yes (Death)
  Sender: FDA-Public Use
  Company Number: JP-PFIZER INC-2009238819

PATIENT

DRUGS (1)
  1. REVATIO [Suspect]
     Route: 048

REACTIONS (1)
  - PULMONARY HYPERTENSION [None]
